FAERS Safety Report 26143106 (Version 1)
Quarter: 2025Q4

REPORT INFORMATION
  Report Type: Spontaneous
  Country: US (occurrence: US)
  Receive Date: 20251211
  Receipt Date: 20251211
  Transmission Date: 20260118
  Serious: No
  Sender: ALVOGEN
  Company Number: US-ALVOGEN-2025096360

PATIENT
  Sex: Female

DRUGS (1)
  1. LEVOTHYROXINE [Suspect]
     Active Substance: LEVOTHYROXINE
     Indication: Hypothyroidism
     Dosage: RECEIVED ON: 17-DEC-2024, STRENGTH: 137 MCG, EXP.: DEC-2026, ONCE EVERY MORNING ON EMPTY STOMACH
     Dates: start: 20241218

REACTIONS (10)
  - Brain fog [Unknown]
  - Decreased interest [Unknown]
  - Asthenia [Unknown]
  - Palpitations [Unknown]
  - Hyperhidrosis [Unknown]
  - Product packaging quantity issue [Unknown]
  - Product quality issue [Unknown]
  - Product physical issue [Unknown]
  - Poor quality product administered [Unknown]
  - Drug ineffective [Unknown]

NARRATIVE: CASE EVENT DATE: 20241201
